FAERS Safety Report 9908102 (Version 1)
Quarter: 2014Q1

REPORT INFORMATION
  Report Type: Other
  Country: GB (occurrence: GB)
  Receive Date: 20140219
  Receipt Date: 20140219
  Transmission Date: 20141002
  Serious: Yes (Other)
  Sender: FDA-Public Use
  Company Number: GB-MACLEODS PHARMACEUTICALS US LTD-MAC2014000894

PATIENT
  Sex: 0

DRUGS (2)
  1. ESCITALOPRAM [Suspect]
     Indication: BIPOLAR II DISORDER
     Dosage: UNK
     Route: 065
  2. GLICLAZIDE [Suspect]
     Indication: DIABETES MELLITUS
     Dosage: UNK
     Route: 048
     Dates: start: 201306

REACTIONS (3)
  - Inhibitory drug interaction [Unknown]
  - Depressed mood [Recovered/Resolved]
  - Suicidal ideation [Recovered/Resolved]
